FAERS Safety Report 9403156 (Version 1)
Quarter: 2013Q3

REPORT INFORMATION
  Report Type: Spontaneous
  Country: JP (occurrence: JP)
  Receive Date: 20130716
  Receipt Date: 20130716
  Transmission Date: 20140515
  Serious: Yes (Other)
  Sender: FDA-Public Use
  Company Number: JP-GLAXOSMITHKLINE-B0907599A

PATIENT
  Sex: 0

DRUGS (1)
  1. ZOVIRAX [Suspect]
     Indication: HERPES SIMPLEX MENINGOENCEPHALITIS
     Route: 042

REACTIONS (2)
  - Renal failure acute [Unknown]
  - Renal disorder [Unknown]
